FAERS Safety Report 15867488 (Version 1)
Quarter: 2019Q1

REPORT INFORMATION
  Report Type: Spontaneous
  Country: US (occurrence: US)
  Receive Date: 20190125
  Receipt Date: 20190125
  Transmission Date: 20190417
  Serious: Yes (Disabling)
  Sender: FDA-Public Use
  Company Number: US-TEVA-2019-US-1001125

PATIENT

DRUGS (2)
  1. DOCETAXEL. [Suspect]
     Active Substance: DOCETAXEL
     Dates: start: 20151003, end: 20151209
  2. TAXOTERE [Suspect]
     Active Substance: DOCETAXEL
     Dates: start: 20151003, end: 20151209

REACTIONS (1)
  - Alopecia [Not Recovered/Not Resolved]
